FAERS Safety Report 9804137 (Version 4)
Quarter: 2014Q1

REPORT INFORMATION
  Report Type: Report from Study
  Country: US (occurrence: US)
  Receive Date: 20140108
  Receipt Date: 20140226
  Transmission Date: 20141002
  Serious: Yes (Other)
  Sender: FDA-Public Use
  Company Number: US-CELGENEUS-163-21880-13125118

PATIENT
  Age: 59 Year
  Sex: Male
  Weight: 58.7 kg

DRUGS (25)
  1. REVLIMID [Suspect]
     Indication: PLASMA CELL MYELOMA
     Dosage: 25 MILLIGRAM
     Route: 048
     Dates: start: 20120127, end: 20120304
  2. REVLIMID [Suspect]
     Dosage: 10 MILLIGRAM
     Route: 048
     Dates: start: 20120305, end: 20120412
  3. REVLIMID [Suspect]
     Dosage: 15 MILLIGRAM
     Route: 048
     Dates: start: 20120518, end: 20120704
  4. REVLIMID [Suspect]
     Dosage: 25 MILLIGRAM
     Route: 048
     Dates: start: 20120713, end: 20120802
  5. REVLIMID [Suspect]
     Dosage: 15 MILLIGRAM
     Route: 048
     Dates: start: 20120810, end: 20130118
  6. REVLIMID [Suspect]
     Dosage: 10 MILLIGRAM
     Route: 048
     Dates: start: 20130125, end: 20140116
  7. DEXAMETHASONE [Suspect]
     Indication: PLASMA CELL MYELOMA
     Route: 065
     Dates: start: 20081030, end: 20081121
  8. DEXAMETHASONE [Suspect]
     Route: 065
     Dates: start: 20081121, end: 20090127
  9. DEXAMETHASONE [Suspect]
     Dosage: 40 MILLIGRAM
     Route: 065
     Dates: start: 20120127, end: 20130607
  10. DEXAMETHASONE [Suspect]
     Dosage: 20 MILLIGRAM
     Route: 065
     Dates: start: 20130614, end: 20131122
  11. DEXAMETHASONE [Suspect]
     Dosage: 20 MILLIGRAM
     Route: 065
     Dates: start: 20131127, end: 20140117
  12. CARFILZOMIB [Suspect]
     Indication: PLASMA CELL MYELOMA
     Route: 065
     Dates: start: 20120127, end: 20120128
  13. CARFILZOMIB [Suspect]
     Route: 065
     Dates: start: 20120203, end: 20120310
  14. CARFILZOMIB [Suspect]
     Route: 065
     Dates: start: 20120323, end: 20120825
  15. CARFILZOMIB [Suspect]
     Route: 065
     Dates: start: 20120907, end: 20130112
  16. CARFILZOMIB [Suspect]
     Route: 065
     Dates: start: 20130125, end: 20130420
  17. CARFILZOMIB [Suspect]
     Route: 065
     Dates: start: 20130517
  18. ACYCLOVIR [Concomitant]
     Indication: ANTIVIRAL PROPHYLAXIS
     Dosage: 500 MILLIGRAM
     Route: 048
     Dates: start: 20120224
  19. ASPIRIN [Concomitant]
     Indication: ANTICOAGULANT THERAPY
     Dosage: 325 MILLIGRAM
     Route: 048
     Dates: start: 20120224
  20. ASPIRIN [Concomitant]
     Indication: ANTIPLATELET THERAPY
  21. CIALIS [Concomitant]
     Indication: ERECTILE DYSFUNCTION
     Route: 048
     Dates: start: 20121101
  22. IMMODIUM [Concomitant]
     Indication: DIARRHOEA
     Route: 048
     Dates: start: 20121024
  23. LANSOPRAZOLE [Concomitant]
     Indication: DRUG THERAPY
     Dosage: 15 MILLIGRAM
     Route: 048
     Dates: start: 20120224
  24. MIRALAX [Concomitant]
     Indication: CONSTIPATION PROPHYLAXIS
     Dosage: 17 GRAM
     Route: 048
     Dates: start: 201203
  25. PAMIDRONATE [Concomitant]
     Indication: PROPHYLAXIS
     Route: 041
     Dates: start: 20130529

REACTIONS (2)
  - Squamous cell carcinoma of skin [Recovered/Resolved]
  - Basal cell carcinoma [Recovered/Resolved]
